FAERS Safety Report 7649509-8 (Version None)
Quarter: 2011Q3

REPORT INFORMATION
  Report Type: 
  Country: None (occurrence: None)
  Receive Date: 20110802
  Receipt Date: 20110725
  Transmission Date: 20111222
  Serious: Yes (Other)
  Sender: FDA-Public Use
  Company Number: GB-B.I. PHARMACEUTICALS,INC./RIDGEFIELD-2011-UK-00797UK

PATIENT
  Sex: Female

DRUGS (2)
  1. OCTREOTIDE ACETATE [Concomitant]
     Dosage: 200 MCG
  2. CLONIDINE HCL [Suspect]
     Indication: PAIN
     Dosage: 200 MCG
     Route: 062

REACTIONS (1)
  - CONVULSION [None]
